FAERS Safety Report 10174961 (Version 1)
Quarter: 2014Q2

REPORT INFORMATION
  Report Type: Spontaneous
  Country: US (occurrence: US)
  Receive Date: 20140515
  Receipt Date: 20140515
  Transmission Date: 20141212
  Serious: Yes (Other)
  Sender: FDA-Public Use
  Company Number: PHEH2014US009691

PATIENT
  Sex: Female

DRUGS (3)
  1. GILENYA [Suspect]
  2. XANAX [Concomitant]
  3. AMITRIPTYLINE [Concomitant]

REACTIONS (2)
  - Blindness [Unknown]
  - Visual impairment [Unknown]
